FAERS Safety Report 9176119 (Version 3)
Quarter: 2012Q4

REPORT INFORMATION
  Report Type: 
  Country: US (occurrence: US)
  Receive Date: 20120919
  Receipt Date: 20121015
  Transmission Date: 20130627
  Serious: Yes (Other)
  Sender: FDA-Public Use
  Company Number: US-RB-033982-11

PATIENT
  Sex: Female

DRUGS (5)
  1. SUBOXONE FILM [Suspect]
     Indication: DRUG DEPENDENCE
     Dosage: Suboxone film
     Route: 060
     Dates: start: 20110630, end: 20110816
  2. SUBOXONE FILM [Suspect]
     Dosage: Suboxone film
     Route: 060
     Dates: start: 20120413
  3. SUBUTEX [Suspect]
     Indication: DRUG DEPENDENCE
     Route: 060
     Dates: start: 20110817, end: 20120412
  4. CIGARETTES [Suspect]
     Indication: NICOTINE DEPENDENCE
     Dosage: Dosing details unknown
     Route: 065
  5. KLONOPIN [Suspect]
     Indication: ANXIETY
     Route: 048

REACTIONS (2)
  - Exposure during pregnancy [Recovered/Resolved]
  - Premature delivery [Recovered/Resolved]
